FAERS Safety Report 15386029 (Version 2)
Quarter: 2018Q4

REPORT INFORMATION
  Report Type: Spontaneous
  Country: GB (occurrence: GB)
  Receive Date: 20180914
  Receipt Date: 20181116
  Transmission Date: 20190204
  Serious: Yes (Disabling, Other)
  Sender: FDA-Public Use
  Company Number: GB-PFIZER INC-2018367825

PATIENT
  Age: 30 Year
  Sex: Female
  Weight: 79 kg

DRUGS (2)
  1. MEBEVERINE [Interacting]
     Active Substance: MEBEVERINE
     Indication: IRRITABLE BOWEL SYNDROME
     Dosage: UNK
  2. SERTRALINE HCL [Suspect]
     Active Substance: SERTRALINE HYDROCHLORIDE
     Indication: DEPRESSION SUICIDAL
     Dosage: 200 MG, UNK
     Route: 048
     Dates: start: 20161212, end: 20180701

REACTIONS (2)
  - Nausea [Unknown]
  - Drug interaction [Unknown]
